FAERS Safety Report 7371413-3 (Version None)
Quarter: 2011Q1

REPORT INFORMATION
  Report Type: 
  Country: None (occurrence: None)
  Receive Date: 20110324
  Receipt Date: 20110318
  Transmission Date: 20110831
  Serious: Yes (Death, Hospitalization)
  Sender: FDA-Public Use
  Company Number: GB-TEVA-272455ISR

PATIENT
  Age: 76 Year
  Sex: Female

DRUGS (1)
  1. PREDNISOLONE [Suspect]
     Indication: POLYMYALGIA RHEUMATICA

REACTIONS (7)
  - INFECTION [None]
  - MULTI-ORGAN FAILURE [None]
  - ABSCESS [None]
  - GRAFT INFECTION [None]
  - SEPSIS [None]
  - INTERVERTEBRAL DISCITIS [None]
  - INTESTINAL PERFORATION [None]
